FAERS Safety Report 8386496-1 (Version None)
Quarter: 2012Q2

REPORT INFORMATION
  Report Type: 
  Country: None (occurrence: None)
  Receive Date: 20120525
  Receipt Date: 20120517
  Transmission Date: 20120825
  Serious: Yes (Life-Threatening, Hospitalization, Other)
  Sender: FDA-Public Use
  Company Number: JP-CELGENEUS-087-50794-12052915

PATIENT
  Age: 53 Year
  Sex: Male
  Weight: 75 kg

DRUGS (11)
  1. URINORM [Concomitant]
     Route: 065
  2. COTRIM [Suspect]
     Route: 048
     Dates: start: 20111013, end: 20111111
  3. ACETAMINOPHEN [Concomitant]
     Route: 065
     Dates: start: 20111013, end: 20111013
  4. VIDAZA [Suspect]
     Indication: MYELODYSPLASTIC SYNDROME
     Dosage: 75 MILLIGRAM/SQ. METER
     Route: 041
     Dates: start: 20111013, end: 20111019
  5. URALYT [Concomitant]
     Route: 065
  6. VIDAZA [Suspect]
     Dosage: 37.5 MILLIGRAM/SQ. METER
     Route: 058
     Dates: start: 20120105, end: 20120116
  7. ITRACONAZOLE [Concomitant]
     Route: 065
     Dates: start: 20111013
  8. RAMELTEON [Concomitant]
     Route: 065
     Dates: start: 20111013, end: 20111017
  9. OXYGEN [Concomitant]
     Route: 055
  10. CONIEL [Concomitant]
     Route: 065
  11. NEU-UP [Concomitant]
     Route: 065
     Dates: start: 20111108, end: 20111109

REACTIONS (4)
  - PNEUMONIA [None]
  - PLATELET COUNT DECREASED [None]
  - WHITE BLOOD CELL COUNT DECREASED [None]
  - ANAEMIA [None]
